FAERS Safety Report 20421202 (Version 6)
Quarter: 2024Q1

REPORT INFORMATION
  Report Type: Spontaneous
  Country: US (occurrence: US)
  Receive Date: 20220203
  Receipt Date: 20240327
  Transmission Date: 20240410
  Serious: Yes (Other)
  Sender: FDA-Public Use
  Company Number: US-PFIZER INC-2021674585

PATIENT
  Age: 62 Year
  Sex: Female
  Weight: 66.7 kg

DRUGS (4)
  1. IBRANCE [Suspect]
     Active Substance: PALBOCICLIB
     Indication: Breast cancer female
     Dosage: DAILY FOR 21 DAYS ON AND 7 DAYS OFF
     Dates: start: 20201210
  2. IBRANCE [Suspect]
     Active Substance: PALBOCICLIB
     Dosage: 1 TABLET ONCE DAILY FOR 21 DAYS FOLLOWED BY 7 DAYS OFF REPEATED EVERY 28 DAYS WITH OR WITHOUT FOOD
     Route: 048
     Dates: start: 20210218
  3. LETROZOLE [Concomitant]
     Active Substance: LETROZOLE
     Indication: Breast cancer female
     Dosage: UNK
     Dates: start: 202012
  4. DENOSUMAB [Concomitant]
     Active Substance: DENOSUMAB

REACTIONS (4)
  - Second primary malignancy [Unknown]
  - Thyroid cancer [Unknown]
  - Arthralgia [Unknown]
  - Neoplasm progression [Unknown]
